FAERS Safety Report 12350080 (Version 2)
Quarter: 2016Q2

REPORT INFORMATION
  Report Type: Report from Study
  Country: US (occurrence: US)
  Receive Date: 20160510
  Receipt Date: 20160527
  Transmission Date: 20160815
  Serious: No
  Sender: FDA-Public Use
  Company Number: US-AMGEN-USASL2016056700

PATIENT
  Age: 15 Year
  Sex: Female

DRUGS (2)
  1. ENBREL [Suspect]
     Active Substance: ETANERCEPT
     Indication: JUVENILE IDIOPATHIC ARTHRITIS
     Dosage: 50 MG, QWK
     Route: 065
     Dates: start: 20160429
  2. ENBREL [Suspect]
     Active Substance: ETANERCEPT
     Indication: CONNECTIVE TISSUE DISORDER

REACTIONS (6)
  - Skin sensitisation [Unknown]
  - Abdominal pain upper [Unknown]
  - Erythema [Unknown]
  - Nasopharyngitis [Unknown]
  - Headache [Recovered/Resolved]
  - Oropharyngeal pain [Unknown]

NARRATIVE: CASE EVENT DATE: 2016
